FAERS Safety Report 7883238-0 (Version None)
Quarter: 2011Q4

REPORT INFORMATION
  Report Type: 
  Country: None (occurrence: None)
  Receive Date: 20111031
  Receipt Date: 20111031
  Transmission Date: 20120403
  Serious: Yes (Hospitalization, Other)
  Sender: FDA-Public Use
  Company Number: None

PATIENT
  Sex: Female
  Weight: 63.5036 kg

DRUGS (2)
  1. ABILIFY [Suspect]
     Indication: SCHIZOAFFECTIVE DISORDER
     Dosage: I THINK IT WAS 1MG ONCE A DAY MOUTH
     Route: 048
     Dates: start: 20110601
  2. CHANTIX [Suspect]
     Indication: BIPOLAR DISORDER
     Dosage: 2MG ONCE A DAY MOUTH
     Route: 048
     Dates: start: 20110601

REACTIONS (3)
  - MALAISE [None]
  - DRUG INEFFECTIVE [None]
  - HALLUCINATIONS, MIXED [None]
